FAERS Safety Report 15279037 (Version 2)
Quarter: 2018Q3

REPORT INFORMATION
  Report Type: Spontaneous
  Country: GB (occurrence: GB)
  Receive Date: 20180815
  Receipt Date: 20180911
  Transmission Date: 20181010
  Serious: Yes (Hospitalization)
  Sender: FDA-Public Use
  Company Number: GB-TEVA-2018-GB-941054

PATIENT
  Age: 75 Year
  Sex: Female

DRUGS (18)
  1. DICLOFENAC [Concomitant]
     Active Substance: DICLOFENAC
  2. LOPERAMIDE [Concomitant]
     Active Substance: LOPERAMIDE
  3. BECLOMETASONE DIPROPIONATE [Concomitant]
     Active Substance: BECLOMETHASONE DIPROPIONATE
  4. HYDROXOCOBALAMIN [Concomitant]
     Active Substance: HYDROXOCOBALAMIN
  5. LANSOPRAZOLE. [Concomitant]
     Active Substance: LANSOPRAZOLE
  6. EMULSIFYING OINTMENT [Concomitant]
  7. HYOSCINE BUTYLBROMIDE [Concomitant]
     Active Substance: BUTYLSCOPOLAMINE
  8. COLECALCIFEROL [Concomitant]
     Active Substance: CHOLECALCIFEROL
  9. SERTRALINE [Concomitant]
     Active Substance: SERTRALINE HYDROCHLORIDE
  10. PARACETAMOL [Concomitant]
     Active Substance: ACETAMINOPHEN
  11. NAPROXEN. [Concomitant]
     Active Substance: NAPROXEN
  12. WARFARIN [Suspect]
     Active Substance: WARFARIN
     Indication: THROMBOSIS PROPHYLAXIS
     Dosage: 6MG ON FRIDAYS, 5MG ON EVERY OTHER DAY OF THE WEEK
     Route: 048
     Dates: start: 2014
  13. OLMESARTAN [Concomitant]
     Active Substance: OLMESARTAN
  14. SALBUTAMOL [Concomitant]
     Active Substance: ALBUTEROL
  15. MORPHINE SULFATE. [Concomitant]
     Active Substance: MORPHINE SULFATE
  16. ALGINIC ACID [Concomitant]
     Active Substance: ALGINIC ACID
  17. LACTULOSE. [Concomitant]
     Active Substance: LACTULOSE
  18. DOMPERIDONE [Concomitant]
     Active Substance: DOMPERIDONE

REACTIONS (1)
  - Rectal haemorrhage [Recovering/Resolving]

NARRATIVE: CASE EVENT DATE: 20180703
